FAERS Safety Report 8760508 (Version 1)
Quarter: 2012Q4

REPORT INFORMATION
  Report Type: Spontaneous
  Country: US (occurrence: None)
  Receive Date: 20120829
  Receipt Date: 20120829
  Transmission Date: 20130627
  Serious: Yes (Other)
  Sender: FDA-Public Use
  Company Number: None

PATIENT
  Age: 57 Year
  Sex: Male

DRUGS (1)
  1. STELARA 45 MG SUB Q FOR 1 INJECTION JANSSEN [Suspect]
     Indication: PSORIASIS
     Route: 058
     Dates: start: 20120820

REACTIONS (3)
  - Rash [None]
  - Rash [None]
  - Drug hypersensitivity [None]
